FAERS Safety Report 17347345 (Version 1)
Quarter: 2020Q1

REPORT INFORMATION
  Report Type: Report from Study
  Country: US (occurrence: US)
  Receive Date: 20200129
  Receipt Date: 20200129
  Transmission Date: 20200409
  Serious: No
  Sender: FDA-Public Use
  Company Number: US-EXELIXIS-CABO-19022157

PATIENT
  Sex: Male

DRUGS (2)
  1. CABOMETYX [Suspect]
     Active Substance: CABOZANTINIB S-MALATE
     Dosage: 20 MG, QD
     Dates: start: 20190618
  2. CABOMETYX [Suspect]
     Active Substance: CABOZANTINIB S-MALATE
     Indication: HEPATIC CANCER
     Dosage: 40 MG, QD
     Dates: start: 20190529, end: 20190617

REACTIONS (8)
  - Thyroid hormones decreased [Not Recovered/Not Resolved]
  - Asthenia [Unknown]
  - Headache [Recovering/Resolving]
  - Memory impairment [Unknown]
  - Fatigue [Not Recovered/Not Resolved]
  - Hypertension [Recovering/Resolving]
  - Chest pain [Recovering/Resolving]
  - Dizziness [Unknown]
